APPROVED DRUG PRODUCT: IPRATROPIUM BROMIDE
Active Ingredient: IPRATROPIUM BROMIDE
Strength: 0.02%
Dosage Form/Route: SOLUTION;INHALATION
Application: A207903 | Product #001
Applicant: SUN PHARMACEUTICAL INDUSTRIES LTD
Approved: Jan 3, 2017 | RLD: No | RS: No | Type: DISCN